FAERS Safety Report 7432299-1 (Version None)
Quarter: 2011Q2

REPORT INFORMATION
  Report Type: 
  Country: None (occurrence: None)
  Receive Date: 20110422
  Receipt Date: 20110413
  Transmission Date: 20111010
  Serious: Yes (Hospitalization)
  Sender: FDA-Public Use
  Company Number: JP-B.I. PHARMACEUTICALS,INC./RIDGEFIELD-2011-BP-10669NB

PATIENT
  Sex: Male
  Weight: 66 kg

DRUGS (7)
  1. PLAVIX [Concomitant]
     Dosage: 50 MG
     Route: 048
     Dates: start: 20100301
  2. ASPENON [Concomitant]
     Dosage: 30 MG
     Route: 048
     Dates: start: 20110201, end: 20110329
  3. HERBESSER [Concomitant]
     Dosage: 50 MCG
     Route: 042
     Dates: start: 20110329, end: 20110331
  4. PRADAXA [Suspect]
     Indication: ATRIAL FIBRILLATION
     Dosage: 220 MG
     Route: 048
     Dates: start: 20110329, end: 20110401
  5. HERBESSER [Concomitant]
     Dosage: 100 MG
     Route: 048
     Dates: start: 20110401
  6. EPADEL [Concomitant]
     Dosage: 1800 MG
     Route: 048
     Dates: start: 20100301
  7. METHYCOBAL [Concomitant]
     Dosage: 1500 MCG
     Route: 048
     Dates: start: 20100301

REACTIONS (1)
  - HEPATIC FUNCTION ABNORMAL [None]
